FAERS Safety Report 11361106 (Version 2)
Quarter: 2015Q3

REPORT INFORMATION
  Report Type: Spontaneous
  Country: BR (occurrence: BR)
  Receive Date: 20150810
  Receipt Date: 20150901
  Transmission Date: 20151125
  Serious: Yes (Other)
  Sender: FDA-Public Use
  Company Number: BR-SA-2015SA118877

PATIENT

DRUGS (1)
  1. CLEXANE SAFETY LOCK [Suspect]
     Active Substance: ENOXAPARIN SODIUM
     Indication: MATERNAL EXPOSURE TIMING UNSPECIFIED
     Dosage: SYRINGES
     Route: 064
     Dates: start: 201410, end: 20150722

REACTIONS (2)
  - Foetal exposure during pregnancy [Unknown]
  - Growth retardation [Unknown]
